FAERS Safety Report 21530117 (Version 1)
Quarter: 2022Q4

REPORT INFORMATION
  Report Type: Spontaneous
  Country: GB (occurrence: GB)
  Receive Date: 20221031
  Receipt Date: 20221031
  Transmission Date: 20230112
  Serious: Yes (Other)
  Sender: FDA-Public Use
  Company Number: None

PATIENT
  Age: 71 Year
  Sex: Male
  Weight: 82 kg

DRUGS (6)
  1. ATORVASTATIN [Suspect]
     Active Substance: ATORVASTATIN
     Indication: Product used for unknown indication
     Dosage: THERAPY END DATE : NOT ASKED, UNIT DOSE : 40 MG
     Route: 065
     Dates: start: 20171030
  2. BENDROFLUMETHIAZIDE [Concomitant]
     Active Substance: BENDROFLUMETHIAZIDE
     Indication: Hypertension
     Dosage: 1 DOSAGE FORMS DAILY; EACH MORNING, UNIT DOSE : 1 DOSAGE FORMS, FREQUENCY ; 1 , FREQUENCY TIME : 1 D
     Dates: start: 20210720
  3. RAMIPRIL [Concomitant]
     Active Substance: RAMIPRIL
     Indication: Product used for unknown indication
     Dosage: 1 DOSAGE FORMS DAILY; EACH MORNING, UNIT DOSE : 1 DOSAGE FORMS, FREQUENCY ; 1 , FREQUENCY TIME : 1 D
     Dates: start: 20210720
  4. ROSUVASTATIN [Concomitant]
     Active Substance: ROSUVASTATIN
     Indication: Blood cholesterol increased
     Dosage: 1 DOSAGE FORMS DAILY; EACH EVENING, UNIT DOSE : 1 DOSAGE FORMS, FREQUENCY ; 1 , FREQUENCY TIME : 1 D
     Dates: start: 20220705
  5. TAMSULOSIN HYDROCHLORIDE [Concomitant]
     Active Substance: TAMSULOSIN HYDROCHLORIDE
     Indication: Prostatomegaly
     Dosage: 1 DOSAGE FORMS DAILY; EACH MORNING, UNIT DOSE : 1 DOSAGE FORMS, FREQUENCY ; 1 , FREQUENCY TIME : 1 D
     Dates: start: 20210720
  6. TIMOLOL [Concomitant]
     Active Substance: TIMOLOL
     Indication: Product used for unknown indication
     Dosage: 1 GTT DAILY; INTO BOTH EYES IN THE MORNING, UNIT DOSE : 1 GTT, FREQUENCY ; 1 , FREQUENCY TIME : 1 DA
     Dates: start: 20210720

REACTIONS (1)
  - Oedema peripheral [Not Recovered/Not Resolved]

NARRATIVE: CASE EVENT DATE: 20171030
